FAERS Safety Report 9390011 (Version 2)
Quarter: 2013Q4

REPORT INFORMATION
  Report Type: Spontaneous
  Country: US (occurrence: US)
  Receive Date: 20130708
  Receipt Date: 20131101
  Transmission Date: 20140711
  Serious: Yes (Other)
  Sender: FDA-Public Use
  Company Number: US-AMGEN-USASP2013045088

PATIENT
  Age: 63 Year
  Sex: Female
  Weight: 86.17 kg

DRUGS (22)
  1. ENBREL [Suspect]
     Indication: RHEUMATOID ARTHRITIS
     Dosage: 50 MG, QWK
     Route: 065
     Dates: start: 2010, end: 2013
  2. ZOLOFT [Concomitant]
     Dosage: UNK
  3. FOLIC ACID [Concomitant]
     Dosage: UNK
  4. PROVENTIL                          /00139501/ [Concomitant]
     Dosage: UNK
  5. ADVAIR [Concomitant]
     Dosage: UNK
  6. TIOTROPIUM [Concomitant]
     Dosage: UNK
  7. VALIUM                             /00017001/ [Concomitant]
     Dosage: UNK
  8. PREDNISONE [Concomitant]
     Dosage: UNK
  9. METHOTREXATE [Concomitant]
     Dosage: UNK
  10. FISH OIL [Concomitant]
     Dosage: UNK
  11. ZOCOR [Concomitant]
     Dosage: UNK
  12. IBUPROFEN [Concomitant]
     Dosage: UNK
  13. PRILOSEC                           /00661201/ [Concomitant]
     Dosage: UNK
  14. ACIDOPHILUS [Concomitant]
     Dosage: UNK
  15. VITAMIN D3 [Concomitant]
     Dosage: UNK
  16. BABY ASPIRIN [Concomitant]
     Dosage: 81 MG, UNK
  17. MULTIVITAMINS [Concomitant]
     Dosage: UNK
  18. POTASSIUM [Concomitant]
     Dosage: UNK
  19. VITAMIN C                          /00008001/ [Concomitant]
     Dosage: UNK
  20. VITAMIN E                          /00110501/ [Concomitant]
     Dosage: UNK
  21. ZYRTEC [Concomitant]
     Dosage: UNK
  22. OXYGEN [Concomitant]
     Dosage: UNK

REACTIONS (3)
  - Pulmonary mass [Unknown]
  - Melanocytic naevus [Recovered/Resolved]
  - Metastatic malignant melanoma [Unknown]
